FAERS Safety Report 7154778-7 (Version None)
Quarter: 2010Q4

REPORT INFORMATION
  Report Type: 
  Country: None (occurrence: None)
  Receive Date: 20101214
  Receipt Date: 20091109
  Transmission Date: 20110411
  Serious: No
  Sender: FDA-Public Use
  Company Number: US-AMGEN-KDL373609

PATIENT

DRUGS (15)
  1. ENBREL [Suspect]
     Indication: PRODUCT USED FOR UNKNOWN INDICATION
     Dosage: 50 MG, QWK
     Route: 058
  2. FUROSEMIDE [Concomitant]
     Dosage: 20 MG, UNK
  3. PREDNISONE [Concomitant]
     Dosage: 5 MG, UNK
  4. LEFLUNOMIDE [Concomitant]
     Dosage: 20 MG, UNK
  5. METOPROLOL [Concomitant]
     Dosage: 50 MG, UNK
  6. GABAPENTIN [Concomitant]
     Dosage: 300 MG, UNK
  7. METFORMIN [Concomitant]
     Dosage: 500 MG, UNK
  8. LISINOPRIL [Concomitant]
     Dosage: 5 MG, UNK
  9. UNSPECIFIED MEDICATION [Concomitant]
     Dosage: 325 MG, UNK
  10. OXYCODONE [Concomitant]
     Dosage: UNK UNK, UNK
  11. AMITRIPTYLINE [Concomitant]
     Dosage: 10 MG, UNK
  12. DOXYCYCLINE [Concomitant]
     Dosage: 100 MG, UNK
  13. IBUPROFEN [Concomitant]
     Dosage: 800 MG, UNK
  14. SIMVASTATIN [Concomitant]
     Dosage: 80 MG, UNK
  15. CYCLOBENZAPRINE [Concomitant]
     Dosage: 10 MG, UNK

REACTIONS (3)
  - BLISTER [None]
  - FURUNCLE [None]
  - RASH [None]
